FAERS Safety Report 22130450 (Version 6)
Quarter: 2023Q4

REPORT INFORMATION
  Report Type: Spontaneous
  Country: IN (occurrence: IN)
  Receive Date: 20230323
  Receipt Date: 20231019
  Transmission Date: 20240110
  Serious: Yes (Hospitalization, Other)
  Sender: FDA-Public Use
  Company Number: IN-PFIZER INC-PV202300004843

PATIENT
  Age: 70 Year
  Sex: Female
  Weight: 59.4 kg

DRUGS (6)
  1. PALBOCICLIB [Suspect]
     Active Substance: PALBOCICLIB
     Dosage: UNK
     Dates: start: 202211
  2. PALBOCICLIB [Suspect]
     Active Substance: PALBOCICLIB
     Dosage: 125 MG, 1X/DAY
     Route: 048
  3. PALBOCICLIB [Suspect]
     Active Substance: PALBOCICLIB
     Dosage: 75 MG, 1X/DAY (DAY21/28)
     Route: 048
     Dates: start: 20230318
  4. PALBOCICLIB [Suspect]
     Active Substance: PALBOCICLIB
     Dosage: 100 MG, 1X/DAY (OD) (3 WEEKS ON 1 WEEK OFF)
     Route: 048
  5. LETROZOLE [Concomitant]
     Active Substance: LETROZOLE
     Dosage: UNK
     Dates: start: 202211
  6. ESENTRA [DENOSUMAB] [Concomitant]
     Dosage: UNK
     Dates: start: 202211

REACTIONS (9)
  - Febrile neutropenia [Recovered/Resolved]
  - Cytopenia [Unknown]
  - Blood pressure systolic increased [Unknown]
  - White blood cell count decreased [Unknown]
  - Blood creatinine increased [Unknown]
  - Respiratory rate increased [Unknown]
  - Blood pressure diastolic increased [Unknown]
  - Mean arterial pressure increased [Unknown]
  - Haemoglobin decreased [Unknown]

NARRATIVE: CASE EVENT DATE: 20230228
